FAERS Safety Report 10548395 (Version 5)
Quarter: 2018Q3

REPORT INFORMATION
  Report Type: Spontaneous
  Country: US (occurrence: US)
  Receive Date: 20141028
  Receipt Date: 20180918
  Transmission Date: 20181010
  Serious: Yes (Other)
  Sender: FDA-Public Use
  Company Number: US-PFIZER INC-2014291625

PATIENT
  Age: 61 Year
  Sex: Female
  Weight: 55.33 kg

DRUGS (6)
  1. LYRICA [Suspect]
     Active Substance: PREGABALIN
     Dosage: 150 MG, 2X/DAY
     Route: 048
     Dates: start: 201308
  2. SECTRAL [Concomitant]
     Active Substance: ACEBUTOLOL HYDROCHLORIDE
     Indication: TACHYCARDIA
     Dosage: 200 MG, 2X/DAY
  3. LYRICA [Suspect]
     Active Substance: PREGABALIN
     Dosage: 300 MG, 2X/DAY
     Route: 048
  4. LYRICA [Suspect]
     Active Substance: PREGABALIN
     Dosage: UNK
     Route: 048
     Dates: start: 201710, end: 201803
  5. CELEXA [Concomitant]
     Active Substance: CITALOPRAM HYDROBROMIDE
     Indication: ANXIETY
     Dosage: 20 MG, DAILY
  6. LYRICA [Suspect]
     Active Substance: PREGABALIN
     Indication: HERPES ZOSTER
     Dosage: 60 MG, 2X/DAY
     Route: 048
     Dates: start: 201302

REACTIONS (15)
  - Tooth loss [Unknown]
  - Drug ineffective [Not Recovered/Not Resolved]
  - Loose tooth [Unknown]
  - Bone loss [Unknown]
  - Drug withdrawal syndrome [Unknown]
  - Depression [Unknown]
  - Nausea [Unknown]
  - Alopecia [Unknown]
  - Anxiety [Unknown]
  - Agoraphobia [Unknown]
  - Tooth fracture [Recovered/Resolved]
  - Dehydration [Unknown]
  - Feeding disorder [Unknown]
  - Tooth disorder [Not Recovered/Not Resolved]
  - Weight decreased [Unknown]

NARRATIVE: CASE EVENT DATE: 2013
